FAERS Safety Report 6099754-0 (Version None)
Quarter: 2009Q1

REPORT INFORMATION
  Report Type: 
  Country: None (occurrence: None)
  Receive Date: 20090303
  Receipt Date: 20090218
  Transmission Date: 20090719
  Serious: Yes (Death)
  Sender: FDA-Public Use
  Company Number: US-ROCHE-615475

PATIENT
  Age: 55 Year
  Sex: Male

DRUGS (5)
  1. RIBAVIRIN [Suspect]
     Indication: HEPATITIS C
     Route: 065
     Dates: start: 20060101, end: 20070101
  2. CELLCEPT [Suspect]
     Route: 065
     Dates: end: 20070101
  3. INTERFERON [Suspect]
     Indication: HEPATITIS C
     Route: 065
     Dates: start: 20060101, end: 20070101
  4. PROGRAF [Concomitant]
  5. PREDNISONE [Concomitant]

REACTIONS (2)
  - ABDOMINAL DISTENSION [None]
  - MANTLE CELL LYMPHOMA [None]
